FAERS Safety Report 24622030 (Version 1)
Quarter: 2024Q4

REPORT INFORMATION
  Report Type: Spontaneous
  Country: US (occurrence: US)
  Receive Date: 20241114
  Receipt Date: 20241114
  Transmission Date: 20250115
  Serious: Yes (Life-Threatening)
  Sender: NOVARTIS
  Company Number: US-002147023-NVSC2024US219504

PATIENT

DRUGS (1)
  1. COSENTYX [Suspect]
     Active Substance: SECUKINUMAB
     Indication: Psoriatic arthropathy
     Dosage: UNK
     Route: 065

REACTIONS (3)
  - Fatigue [Unknown]
  - Brain fog [Unknown]
  - Disturbance in attention [Unknown]
